FAERS Safety Report 9517839 (Version 2)
Quarter: 2013Q3

REPORT INFORMATION
  Report Type: Spontaneous
  Country: BR (occurrence: BR)
  Receive Date: 20130912
  Receipt Date: 20130918
  Transmission Date: 20140515
  Serious: Yes (Hospitalization)
  Sender: FDA-Public Use
  Company Number: BR-ASTRAZENECA-2013SE67578

PATIENT
  Age: 22345 Day
  Sex: Male
  Weight: 83 kg

DRUGS (4)
  1. SELOZOK [Suspect]
     Indication: DRESSLER^S SYNDROME
     Route: 048
     Dates: start: 2007
  2. CRESTOR [Suspect]
     Indication: DRESSLER^S SYNDROME
     Route: 048
     Dates: start: 2007
  3. CRESTOR [Suspect]
     Indication: BLOOD CHOLESTEROL INCREASED
     Route: 048
     Dates: start: 2007
  4. GALVUS MET [Concomitant]
     Indication: DIABETES MELLITUS
     Dates: start: 2007

REACTIONS (1)
  - Coronary artery occlusion [Recovered/Resolved]
